FAERS Safety Report 6811529-0 (Version None)
Quarter: 2010Q3

REPORT INFORMATION
  Report Type: 
  Country: None (occurrence: None)
  Receive Date: 20100701
  Receipt Date: 20100628
  Transmission Date: 20110219
  Serious: Yes (Hospitalization, Other)
  Sender: FDA-Public Use
  Company Number: US-ASTRAZENECA-2007UW05956

PATIENT
  Age: 408 Month
  Sex: Male
  Weight: 115.2 kg

DRUGS (24)
  1. SEROQUEL [Suspect]
     Indication: SLEEP DISORDER
     Route: 048
     Dates: start: 20020101, end: 20040813
  2. SEROQUEL [Suspect]
     Indication: INSOMNIA
     Route: 048
     Dates: start: 20020101, end: 20040813
  3. SEROQUEL [Suspect]
     Route: 048
     Dates: start: 20030711, end: 20050701
  4. SEROQUEL [Suspect]
     Route: 048
     Dates: start: 20030711, end: 20050701
  5. MIRTAZAPINE [Concomitant]
     Dates: start: 20030731
  6. OXYCONTIN [Concomitant]
     Dosage: 10 MG TWO IN THE MORNING, ONE TABLET IN THE EVENING
     Dates: start: 20030331
  7. RANITIDINE [Concomitant]
     Dates: start: 20030816
  8. PROPRANOLOL [Concomitant]
     Dates: start: 20030422
  9. VOLMAX [Concomitant]
     Dates: start: 20030612
  10. ACCUPRIL [Concomitant]
     Dates: start: 20030422
  11. WARFARIN NA [Concomitant]
     Dates: start: 20030422
  12. ACTOS [Concomitant]
     Dosage: 30 MG, 45 MG DAILY
     Route: 048
     Dates: start: 20030310
  13. GLUCOVANCE [Concomitant]
     Dosage: 5 / 500 TWO FOR TWO TIMES A DAY
     Dates: start: 20030331
  14. ZETIA [Concomitant]
     Dates: start: 20030331
  15. ASPIRIN [Concomitant]
     Dates: start: 20040302
  16. PLAVIX [Concomitant]
     Dates: start: 20040302
  17. METOPROLOL TARTRATE [Concomitant]
     Dates: start: 20040302
  18. TRICOR [Concomitant]
     Dates: start: 20040302
  19. ZOCOR [Concomitant]
     Dates: start: 20040302
  20. AMARYL [Concomitant]
     Dates: start: 20040302
  21. NEURONTIN [Concomitant]
     Dates: start: 20070503
  22. PROSOM [Concomitant]
     Dates: start: 20070502
  23. XENICAL [Concomitant]
     Dates: start: 20020422
  24. INSULIN [Concomitant]
     Dates: start: 20040302

REACTIONS (7)
  - ASTHMA [None]
  - DIABETES MELLITUS INADEQUATE CONTROL [None]
  - HYPERGLYCAEMIA [None]
  - MYOCARDIAL INFARCTION [None]
  - SINUSITIS [None]
  - TYPE 2 DIABETES MELLITUS [None]
  - VOCAL CORD THICKENING [None]
